FAERS Safety Report 26142284 (Version 1)
Quarter: 2025Q4

REPORT INFORMATION
  Report Type: Report from Study
  Country: CA (occurrence: CA)
  Receive Date: 20251210
  Receipt Date: 20251210
  Transmission Date: 20260118
  Serious: Yes (Other)
  Sender: ABBVIE
  Company Number: CA-ABBVIE-6581129

PATIENT
  Age: 36 Year
  Sex: Female
  Weight: 87.6 kg

DRUGS (1)
  1. SKYRIZI [Suspect]
     Active Substance: RISANKIZUMAB-RZAA
     Indication: Crohn^s disease
     Route: 042
     Dates: start: 20251106

REACTIONS (7)
  - Intestinal obstruction [Unknown]
  - Acne [Recovered/Resolved]
  - Erythema [Recovered/Resolved]
  - Headache [Recovered/Resolved]
  - Pruritus [Unknown]
  - Hypertension [Unknown]
  - Stress [Unknown]

NARRATIVE: CASE EVENT DATE: 20250101
